FAERS Safety Report 9333988 (Version 2)
Quarter: 2013Q2

REPORT INFORMATION
  Report Type: Spontaneous
  Country: GB (occurrence: None)
  Receive Date: 20130604
  Receipt Date: 20130611
  Transmission Date: 20140414
  Serious: Yes (Hospitalization)
  Sender: FDA-Public Use
  Company Number: AUR-APL-2013-04543

PATIENT
  Age: 30 Year
  Sex: Female

DRUGS (3)
  1. NAPROXEN (NAPROXEN) [Suspect]
     Indication: MYALGIA
     Dosage: (1D) ORAL
     Route: 048
     Dates: start: 20130424, end: 201304
  2. COPAXONE (GLATIRAMER ACETATE) [Suspect]
     Indication: PRODUCT USED FOR UNKNOWN INDICATION
     Dosage: 1 IN 1 D
     Route: 058
     Dates: start: 20130213
  3. GABAPENTIN (GABAPENTIN) [Concomitant]
     Dosage: 20MG (20MG, 1 IN 1 D, SUBCUTANEOUS
     Route: 058

REACTIONS (7)
  - Neuromyopathy [None]
  - Dizziness [None]
  - Nausea [None]
  - Heart rate increased [None]
  - Palpitations [None]
  - Paraesthesia oral [None]
  - Speech disorder [None]
